FAERS Safety Report 6457312-X (Version None)
Quarter: 2009Q4

REPORT INFORMATION
  Report Type: 
  Country: None (occurrence: None)
  Receive Date: 20091125
  Receipt Date: 20091119
  Transmission Date: 20100525
  Serious: Yes (Other)
  Sender: FDA-Public Use
  Company Number: GXKR2009DE12636

PATIENT
  Age: 54 Year
  Sex: Female

DRUGS (1)
  1. PREDNISOLONE [Suspect]
     Dosage: MAXIMUM DOSE: 150 MG/DAY
     Route: 065

REACTIONS (2)
  - PUSTULAR PSORIASIS [None]
  - WITHDRAWAL SYNDROME [None]
